FAERS Safety Report 7389948-6 (Version None)
Quarter: 2011Q2

REPORT INFORMATION
  Report Type: 
  Country: None (occurrence: None)
  Receive Date: 20110401
  Receipt Date: 20110329
  Transmission Date: 20111010
  Serious: Yes (Death, Other)
  Sender: FDA-Public Use
  Company Number: PHHY2011UA25862

PATIENT
  Age: 61 Year
  Sex: Female

DRUGS (10)
  1. CALIPOZ PROLONGATUM [Concomitant]
     Dosage: UNK UKN, UNK
  2. TORSID [Concomitant]
     Dosage: UNK UKN, UNK
  3. RETARPEN [Suspect]
     Indication: RHEUMATIC HEART DISEASE
     Dosage: 2400000 IU, UNK
     Dates: start: 20031201, end: 20110301
  4. BISOPROLOL [Concomitant]
     Dosage: UNK UKN, UNK
  5. FUROSEMIDE [Concomitant]
     Dosage: UNK
  6. ASPECARD [Concomitant]
     Dosage: UNK UKN, UNK
  7. SYDNOPHARM [Concomitant]
     Dosage: UNK UKN, UNK
  8. DIGOXIN [Concomitant]
     Dosage: UNK UKN, UNK
  9. CARDITAL [Concomitant]
     Dosage: UNK UKN, UNK
  10. CORDARONE [Concomitant]
     Dosage: UNK UKN, UNK

REACTIONS (6)
  - ATRIAL FIBRILLATION [None]
  - BRONCHITIS [None]
  - FEMORAL HERNIA [None]
  - ULCER [None]
  - HYPERAEMIA [None]
  - ANAPHYLACTIC SHOCK [None]
